FAERS Safety Report 5712274-5 (Version None)
Quarter: 2008Q2

REPORT INFORMATION
  Report Type: 
  Country: None (occurrence: None)
  Receive Date: 20080421
  Receipt Date: 20080421
  Transmission Date: 20081010
  Serious: Yes (Congenital Anomaly)
  Sender: FDA-Public Use
  Company Number: None

PATIENT
  Sex: Male
  Weight: 2.6 kg

DRUGS (4)
  1. SUBUTEX [Suspect]
     Indication: DRUG ABUSE
     Dosage: 32 MG DAILY SL
     Route: 060
  2. SUBUTEX [Suspect]
     Indication: DRUG WITHDRAWAL SYNDROME
     Dosage: 32 MG DAILY SL
     Route: 060
  3. MARIJUANA [Concomitant]
  4. TOBACCO [Concomitant]

REACTIONS (4)
  - CAMPTODACTYLY CONGENITAL [None]
  - CLINODACTYLY [None]
  - CONGENITAL HAND MALFORMATION [None]
  - DRUG EXPOSURE DURING PREGNANCY [None]
